FAERS Safety Report 9630775 (Version 1)
Quarter: 2013Q4

REPORT INFORMATION
  Report Type: Spontaneous
  Country: US (occurrence: None)
  Receive Date: 20131015
  Receipt Date: 20131015
  Transmission Date: 20140711
  Serious: Yes (Other)
  Sender: FDA-Public Use
  Company Number: AUR-APL-2013-08489

PATIENT
  Age: 50 Year
  Sex: Female
  Weight: 68.03 kg

DRUGS (4)
  1. VENLAFAXINE [Suspect]
     Indication: DEPRESSION
  2. EFFEXOR XR (VENLAFAXINE HYDROCHLORIDE) (75 MILLIGRAM, CAPSULE) (VENLAFAXINE HYDROCHLORIDE) [Suspect]
     Indication: DEPRESSION
     Dates: start: 2005, end: 201005
  3. LAMICTAL (LAMOTRIGINE) [Suspect]
     Indication: DEPRESSION
  4. LAMICTAL (LAMOTRIGINE) [Suspect]
     Indication: AFFECTIVE DISORDER

REACTIONS (9)
  - Crying [None]
  - Depression [None]
  - Oral discomfort [None]
  - Panic attack [None]
  - Suicidal ideation [None]
  - Tremor [None]
  - Tremor [None]
  - Depressed mood [None]
  - Feeling abnormal [None]
